FAERS Safety Report 18341025 (Version 1)
Quarter: 2020Q4

REPORT INFORMATION
  Report Type: Report from Study
  Country: GB (occurrence: GB)
  Receive Date: 20201003
  Receipt Date: 20201003
  Transmission Date: 20210113
  Serious: Yes (Life-Threatening)
  Sender: FDA-Public Use
  Company Number: NVSC2020GB247322

PATIENT
  Sex: Male

DRUGS (2)
  1. HYRIMOZ [Suspect]
     Active Substance: ADALIMUMAB-ADAZ
     Indication: ANKYLOSING SPONDYLITIS
     Dosage: 1 DF, Q2W (40MG/0.8ML, FORTNIGHTLY)
     Route: 058
  2. HYRIMOZ [Suspect]
     Active Substance: ADALIMUMAB-ADAZ
     Indication: RHEUMATOID ARTHRITIS
     Dosage: 40 MG (FORTNIGHTLY)
     Route: 058
     Dates: start: 202003

REACTIONS (7)
  - Product dose omission issue [Unknown]
  - Chest pain [Unknown]
  - Dyspnoea [Unknown]
  - Near death experience [Unknown]
  - Hypokinesia [Unknown]
  - Pain [Unknown]
  - Crying [Unknown]
